FAERS Safety Report 19232774 (Version 1)
Quarter: 2021Q2

REPORT INFORMATION
  Report Type: Spontaneous
  Country: US (occurrence: US)
  Receive Date: 20210507
  Receipt Date: 20210507
  Transmission Date: 20210717
  Serious: No
  Sender: FDA-Public Use
  Company Number: US-BEH-2021131153

PATIENT
  Age: 74 Year
  Sex: Female

DRUGS (1)
  1. HIZENTRA [Suspect]
     Active Substance: HUMAN IMMUNOGLOBULIN G
     Indication: ARTERITIS
     Dosage: 10 GRAM, QW
     Route: 058
     Dates: start: 20190603

REACTIONS (9)
  - Swelling [Unknown]
  - Chills [Unknown]
  - Weight decreased [Unknown]
  - No adverse event [Unknown]
  - Off label use [Unknown]
  - Infusion site pain [Unknown]
  - Pyrexia [Unknown]
  - Recalled product administered [Unknown]
  - Erythema [Unknown]

NARRATIVE: CASE EVENT DATE: 20210423
